FAERS Safety Report 8576384 (Version 3)
Quarter: 2012Q4

REPORT INFORMATION
  Report Type: Report from Study
  Country: FR (occurrence: FR)
  Receive Date: 20120523
  Receipt Date: 20120927
  Transmission Date: 20130627
  Serious: Yes (Hospitalization)
  Sender: FDA-Public Use
  Company Number: FR-BRISTOL-MYERS SQUIBB COMPANY-16598740

PATIENT
  Age: 79 Year
  Sex: Female

DRUGS (3)
  1. IPILIMUMAB [Suspect]
     Indication: METASTATIC MALIGNANT MELANOMA
     Dosage: 1df= 8mg/kg or 10mg/kg
     Route: 042
     Dates: start: 20120502
  2. RIVOTRIL [Concomitant]
  3. SEROPLEX [Concomitant]

REACTIONS (1)
  - Pyrexia [Recovered/Resolved]
